FAERS Safety Report 24689511 (Version 3)
Quarter: 2025Q1

REPORT INFORMATION
  Report Type: Report from Study
  Country: US (occurrence: US)
  Receive Date: 20241203
  Receipt Date: 20250306
  Transmission Date: 20250408
  Serious: Yes (Hospitalization, Other)
  Sender: ACADIA PHARMACEUTICALS
  Company Number: US-ACADIA PHARMACEUTICALS INC.-ACA-2024-PIM-007607

PATIENT
  Age: 75 Year
  Sex: Male

DRUGS (5)
  1. NUPLAZID [Suspect]
     Active Substance: PIMAVANSERIN TARTRATE
     Indication: Parkinson^s disease
     Dosage: 34 MILLIGRAM, QD
     Route: 048
     Dates: start: 20241025
  2. NUPLAZID [Suspect]
     Active Substance: PIMAVANSERIN TARTRATE
     Indication: Hallucination
  3. NUPLAZID [Suspect]
     Active Substance: PIMAVANSERIN TARTRATE
     Indication: Parkinson^s disease psychosis
  4. ROPINIROLE [Concomitant]
     Active Substance: ROPINIROLE
  5. RASAGILINE [Concomitant]
     Active Substance: RASAGILINE

REACTIONS (11)
  - Delusion [Recovered/Resolved]
  - Dementia with Lewy bodies [Not Recovered/Not Resolved]
  - Hallucination [Recovered/Resolved]
  - Hallucination [Not Recovered/Not Resolved]
  - Delusion [Recovering/Resolving]
  - Insomnia [Not Recovered/Not Resolved]
  - Abnormal behaviour [Unknown]
  - Fear [Unknown]
  - Anxiety [Recovered/Resolved]
  - Agitation [Recovered/Resolved]
  - Aggression [Recovered/Resolved]

NARRATIVE: CASE EVENT DATE: 20241114
